FAERS Safety Report 8358463 (Version 3)
Quarter: 2013Q4

REPORT INFORMATION
  Report Type: Report from Study
  Country: US (occurrence: US)
  Receive Date: 20120127
  Receipt Date: 20131228
  Transmission Date: 20140711
  Serious: Yes (Hospitalization, Other)
  Sender: FDA-Public Use
  Company Number: US-ALEXION PHARMACEUTICALS INC.-A201200118

PATIENT
  Age: 18 Year
  Sex: Male
  Weight: 64 kg

DRUGS (7)
  1. SOLIRIS [Suspect]
     Indication: PAROXYSMAL NOCTURNAL HAEMOGLOBINURIA
     Dosage: 600 MG, QW
     Route: 042
     Dates: start: 20111208
  2. SOLIRIS [Suspect]
     Indication: OFF LABEL USE
     Dosage: 900 MG, Q2W
     Route: 042
     Dates: start: 20120105
  3. PENICILLIN [Concomitant]
     Indication: PROPHYLAXIS
     Dosage: 250 MG, BID
     Route: 048
  4. VALTREX [Concomitant]
     Indication: HERPES SIMPLEX
     Dosage: 1 G, BID
     Route: 048
  5. PROTONIX [Concomitant]
  6. AMITRIPTYLINE [Concomitant]
  7. NORVASC [Concomitant]

REACTIONS (12)
  - Staphylococcal sepsis [Recovered/Resolved]
  - Device related infection [Recovered/Resolved]
  - Transfusion [Unknown]
  - Platelet disorder [Not Recovered/Not Resolved]
  - Haemoglobin abnormal [Recovering/Resolving]
  - Haematocrit abnormal [Recovering/Resolving]
  - Blood lactate dehydrogenase increased [Unknown]
  - Fatigue [Unknown]
  - Back pain [Unknown]
  - Dyspnoea [Unknown]
  - Jaundice [Unknown]
  - Off label use [Unknown]
